FAERS Safety Report 8542493-4 (Version None)
Quarter: 2012Q3

REPORT INFORMATION
  Report Type: 
  Country: None (occurrence: None)
  Receive Date: 20120726
  Receipt Date: 20110930
  Transmission Date: 20120928
  Serious: Yes (Other)
  Sender: FDA-Public Use
  Company Number: US-ASTRAZENECA-2010SE50782

PATIENT
  Age: 639 Month
  Sex: Female
  Weight: 70.3 kg

DRUGS (1)
  1. SEROQUEL [Suspect]
     Indication: BIPOLAR DISORDER
     Dosage: 100 MG IN THE MORNING AND 300 MG IN THE EVENING
     Route: 048
     Dates: start: 20080101, end: 20101001

REACTIONS (5)
  - SUICIDE ATTEMPT [None]
  - NERVOUSNESS [None]
  - THINKING ABNORMAL [None]
  - DRUG DOSE OMISSION [None]
  - MENTAL DISORDER [None]
